FAERS Safety Report 18697361 (Version 1)
Quarter: 2021Q1

REPORT INFORMATION
  Report Type: Other
  Country: RU (occurrence: RU)
  Receive Date: 20210105
  Receipt Date: 20210105
  Transmission Date: 20210419
  Serious: Yes (Other)
  Sender: FDA-Public Use
  Company Number: RU-VALIDUS PHARMACEUTICALS LLC-RU-2020VAL001102

PATIENT
  Age: 42 Year
  Sex: Female

DRUGS (1)
  1. TRENTAL [Suspect]
     Active Substance: PENTOXIFYLLINE
     Indication: CHRONIC KIDNEY DISEASE
     Dosage: 5.0 ML, QD
     Route: 041
     Dates: start: 20020410, end: 20020415

REACTIONS (1)
  - Dermatitis allergic [Recovered/Resolved]

NARRATIVE: CASE EVENT DATE: 20020415
